FAERS Safety Report 14294025 (Version 1)
Quarter: 2017Q4

REPORT INFORMATION
  Report Type: Spontaneous
  Country: FR (occurrence: FR)
  Receive Date: 20171217
  Receipt Date: 20171217
  Transmission Date: 20180321
  Serious: Yes (Death, Life-Threatening, Hospitalization)
  Sender: FDA-Public Use
  Company Number: FR-CIPLA LTD.-2017FR25053

PATIENT

DRUGS (12)
  1. ZOLEDRONIC ACID [Suspect]
     Active Substance: ZOLEDRONIC ACID
     Indication: PRODUCT USED FOR UNKNOWN INDICATION
     Dosage: 5 MG, ANNUALLY
     Route: 041
     Dates: start: 20170424, end: 20170424
  2. BLINDED PLACEBO [Suspect]
     Active Substance: INVESTIGATIONAL PRODUCT
     Dosage: CODE NOT BROKEN
     Route: 042
  3. COVERAM [Concomitant]
     Active Substance: AMLODIPINE\PERINDOPRIL
     Indication: HYPERTENSION
     Dosage: 1 DF, QD
     Route: 048
     Dates: start: 20110101
  4. ELIQUIS [Concomitant]
     Active Substance: APIXABAN
     Indication: SINUS TACHYCARDIA
     Dosage: 2 DF, QD
     Route: 065
     Dates: start: 20170511
  5. PARACETAMOL [Concomitant]
     Active Substance: ACETAMINOPHEN
     Indication: PAIN
     Dosage: PRN
     Route: 065
  6. BLINDED BYM338 [Suspect]
     Active Substance: BIMAGRUMAB
     Indication: HIP FRACTURE
     Dosage: CODE NOT BROKEN
     Route: 042
     Dates: start: 20170216, end: 20170413
  7. BLINDED PLACEBO [Suspect]
     Active Substance: INVESTIGATIONAL PRODUCT
     Indication: HIP FRACTURE
     Dosage: CODE NOT BROKEN
     Route: 042
     Dates: start: 20170216, end: 20170413
  8. BLINDED BYM338 [Suspect]
     Active Substance: BIMAGRUMAB
     Dosage: CODE NOT BROKEN
     Route: 042
  9. BISOPROLOL [Concomitant]
     Active Substance: BISOPROLOL
     Indication: SINUS TACHYCARDIA
     Dosage: 2.5 MG, QD
     Route: 065
     Dates: start: 20170511
  10. BLINDED NO TREATMENT RECEIVED [Suspect]
     Active Substance: INVESTIGATIONAL PRODUCT
     Indication: HIP FRACTURE
     Dosage: CODE NOT BROKEN
     Route: 042
     Dates: start: 20170216, end: 20170413
  11. DEDROGYL [Concomitant]
     Active Substance: CALCIFEDIOL
     Indication: SUPPLEMENTATION THERAPY
     Dosage: 10 DRP, QD
     Route: 065
     Dates: start: 20170205
  12. BLINDED NO TREATMENT RECEIVED [Suspect]
     Active Substance: INVESTIGATIONAL PRODUCT
     Dosage: CODE NOT BROKEN
     Route: 042

REACTIONS (1)
  - Atrial fibrillation [Fatal]

NARRATIVE: CASE EVENT DATE: 20170511
